FAERS Safety Report 4861785-3 (Version None)
Quarter: 2005Q4

REPORT INFORMATION
  Report Type: 
  Country: None (occurrence: None)
  Receive Date: 20051129
  Receipt Date: 20050505
  Transmission Date: 20060501
  Serious: Yes (Hospitalization)
  Sender: FDA-Public Use
  Company Number: CHPA2005US01252

PATIENT
  Age: 53 Year
  Sex: Male
  Weight: 89.3 kg

DRUGS (2)
  1. WALGREEN'S (NCH)(NICOTINE) TRANS-THERAPEUTIC-SYSTEM [Suspect]
     Indication: SMOKING CESSATION THERAPY
     Dosage: TRANSDERMAL; SEE IMAGE
     Route: 062
     Dates: end: 20050328
  2. WALGREEN'S (NCH)(NICOTINE) TRANS-THERAPEUTIC-SYSTEM [Suspect]
     Indication: SMOKING CESSATION THERAPY
     Dosage: TRANSDERMAL; SEE IMAGE
     Route: 062
     Dates: start: 20050504

REACTIONS (4)
  - DRUG WITHDRAWAL HEADACHE [None]
  - HEADACHE [None]
  - HYPERTENSION [None]
  - IRRITABILITY [None]
